FAERS Safety Report 19745594 (Version 2)
Quarter: 2021Q3

REPORT INFORMATION
  Report Type: Spontaneous
  Country: US (occurrence: US)
  Receive Date: 20210825
  Receipt Date: 20210908
  Transmission Date: 20211014
  Serious: No
  Sender: FDA-Public Use
  Company Number: US-PFIZER INC-2020239430

PATIENT
  Age: 79 Year
  Sex: Female
  Weight: 58.06 kg

DRUGS (1)
  1. TOVIAZ [Suspect]
     Active Substance: FESOTERODINE FUMARATE
     Indication: HYPERTONIC BLADDER
     Dosage: 4MG TWICE A DAY, ONCE IN MORNING AND ONCE AT NIGHT.
     Route: 048

REACTIONS (2)
  - Off label use [Unknown]
  - Urinary tract infection [Unknown]
